FAERS Safety Report 6074439-5 (Version None)
Quarter: 2009Q1

REPORT INFORMATION
  Report Type: 
  Country: None (occurrence: None)
  Receive Date: 20090206
  Receipt Date: 20090126
  Transmission Date: 20090719
  Serious: Yes (Hospitalization)
  Sender: FDA-Public Use
  Company Number: WAES 0901USA04024

PATIENT
  Age: 66 Year
  Sex: Male

DRUGS (7)
  1. ZOCOR [Suspect]
     Indication: ACUTE CORONARY SYNDROME
     Dosage: PO
     Route: 048
     Dates: start: 20060615
  2. TAB PLACEBO (UNSPECFIED) [Suspect]
     Indication: ACUTE CORONARY SYNDROME
     Dosage: PO
     Route: 048
     Dates: start: 20060615
  3. ENALAPRIL COMP [Concomitant]
  4. ASPIRIN [Concomitant]
  5. CARVEDILOL [Concomitant]
  6. FELODIPINE [Concomitant]
  7. METFORMIN HCL [Concomitant]

REACTIONS (3)
  - EPISTAXIS [None]
  - HAEMOGLOBIN DECREASED [None]
  - UNEVALUABLE EVENT [None]
